FAERS Safety Report 9462708 (Version 1)
Quarter: 2013Q3

REPORT INFORMATION
  Report Type: Report from Study
  Country: AU (occurrence: AU)
  Receive Date: 20130816
  Receipt Date: 20130816
  Transmission Date: 20140515
  Serious: Yes (Hospitalization)
  Sender: FDA-Public Use
  Company Number: PHHY2013AU088499

PATIENT
  Sex: Male

DRUGS (2)
  1. ACLASTA [Suspect]
     Dosage: UNK
     Route: 042
     Dates: start: 20120130
  2. ACLASTA [Suspect]
     Dosage: UNK
     Route: 042
     Dates: start: 20130814

REACTIONS (4)
  - Lung infection [Recovered/Resolved]
  - Aspiration [Recovered/Resolved]
  - Vomiting [Recovered/Resolved]
  - Heart rate irregular [Recovered/Resolved]
